FAERS Safety Report 25156594 (Version 2)
Quarter: 2025Q2

REPORT INFORMATION
  Report Type: Spontaneous
  Country: CN (occurrence: CN)
  Receive Date: 20250403
  Receipt Date: 20250408
  Transmission Date: 20250717
  Serious: Yes (Hospitalization, Other)
  Sender: PFIZER
  Company Number: CN-PFIZER INC-PV202500037967

PATIENT
  Age: 5 Year
  Sex: Male

DRUGS (2)
  1. AZITHROMYCIN [Suspect]
     Active Substance: AZITHROMYCIN
     Indication: Pneumonia
  2. CEFAZOLIN [Suspect]
     Active Substance: CEFAZOLIN
     Indication: Pneumonia
     Route: 042

REACTIONS (2)
  - Rash [Recovering/Resolving]
  - Haematuria [Recovering/Resolving]
